FAERS Safety Report 4325151-1 (Version None)
Quarter: 2004Q1

REPORT INFORMATION
  Report Type: 
  Country: None (occurrence: None)
  Receive Date: 20040324
  Receipt Date: 20040225
  Transmission Date: 20041129
  Serious: No
  Sender: FDA-Public Use
  Company Number: GB-SHR-04-021703

PATIENT
  Sex: Female

DRUGS (1)
  1. LEVONELLE (OTC) (LEVONORGESTREL) COATED TABLET [Suspect]

REACTIONS (2)
  - CEREBROVASCULAR ACCIDENT [None]
  - OVARIAN CYST [None]
